FAERS Safety Report 6185933-0 (Version None)
Quarter: 2009Q2

REPORT INFORMATION
  Report Type: 
  Country: None (occurrence: None)
  Receive Date: 20090507
  Receipt Date: 20090422
  Transmission Date: 20091009
  Serious: Yes (Death)
  Sender: FDA-Public Use
  Company Number: AE 2009-058

PATIENT
  Age: 91 Year
  Sex: Female

DRUGS (1)
  1. FAZACLO ODT [Suspect]
     Indication: BIPOLAR I DISORDER
     Dosage: 100 MG DAILY PO
     Route: 048
     Dates: start: 20060501, end: 20090201

REACTIONS (1)
  - DEATH [None]
